FAERS Safety Report 17903686 (Version 9)
Quarter: 2023Q2

REPORT INFORMATION
  Report Type: Spontaneous
  Country: US (occurrence: US)
  Receive Date: 20200617
  Receipt Date: 20230424
  Transmission Date: 20230722
  Serious: Yes (Other)
  Sender: FDA-Public Use
  Company Number: US-GILEAD-2020-0472582

PATIENT
  Age: 58 Year
  Sex: Male
  Weight: 90.703 kg

DRUGS (11)
  1. TRUVADA [Suspect]
     Active Substance: EMTRICITABINE\TENOFOVIR DISOPROXIL FUMARATE
     Indication: HIV infection
     Dosage: UNK
     Route: 048
     Dates: start: 20130129, end: 201904
  2. TRUVADA [Suspect]
     Active Substance: EMTRICITABINE\TENOFOVIR DISOPROXIL FUMARATE
     Dosage: UNK
     Route: 048
     Dates: start: 2014, end: 2019
  3. TRUVADA [Suspect]
     Active Substance: EMTRICITABINE\TENOFOVIR DISOPROXIL FUMARATE
     Dosage: UNK
     Route: 048
     Dates: start: 20130129, end: 201604
  4. ATRIPLA [Suspect]
     Active Substance: EFAVIRENZ\EMTRICITABINE\TENOFOVIR DISOPROXIL FUMARATE
     Indication: HIV infection
     Dosage: UNK
     Route: 048
     Dates: start: 2016, end: 2019
  5. ATRIPLA [Suspect]
     Active Substance: EFAVIRENZ\EMTRICITABINE\TENOFOVIR DISOPROXIL FUMARATE
     Dosage: UNK
     Route: 048
     Dates: start: 2014, end: 2019
  6. BIKTARVY [Concomitant]
     Active Substance: BICTEGRAVIR SODIUM\EMTRICITABINE\TENOFOVIR ALAFENAMIDE FUMARATE
  7. ACETAMINOPHEN [Concomitant]
     Active Substance: ACETAMINOPHEN
  8. AMOXICILLIN [Concomitant]
     Active Substance: AMOXICILLIN
  9. ASPIRIN [Concomitant]
     Active Substance: ASPIRIN
  10. PRAVASTATIN [Concomitant]
     Active Substance: PRAVASTATIN
  11. GABAPENTIN [Concomitant]
     Active Substance: GABAPENTIN

REACTIONS (12)
  - Multiple fractures [Not Recovered/Not Resolved]
  - Osteonecrosis [Not Recovered/Not Resolved]
  - T-lymphocyte count decreased [Unknown]
  - Hip fracture [Unknown]
  - Osteoporosis [Unknown]
  - Bone density decreased [Not Recovered/Not Resolved]
  - Bone density abnormal [Unknown]
  - Intervertebral disc injury [Unknown]
  - Limb injury [Unknown]
  - Mobility decreased [Not Recovered/Not Resolved]
  - Pain [Unknown]
  - Emotional distress [Unknown]

NARRATIVE: CASE EVENT DATE: 20160101
